FAERS Safety Report 5962259-9 (Version None)
Quarter: 2008Q4

REPORT INFORMATION
  Report Type: 
  Country: None (occurrence: None)
  Receive Date: 20081121
  Receipt Date: 20081111
  Transmission Date: 20090506
  Serious: Yes (Hospitalization, Other)
  Sender: FDA-Public Use
  Company Number: US-ABBOTT-08P-163-0487050-00

PATIENT
  Sex: Female
  Weight: 78.088 kg

DRUGS (14)
  1. HUMIRA [Suspect]
     Indication: RHEUMATOID ARTHRITIS
     Route: 058
     Dates: start: 20080701
  2. METHOTREXATE [Concomitant]
     Indication: ARTHRITIS
     Route: 048
  3. PREGABALIN [Concomitant]
     Indication: PAIN
     Route: 048
  4. CYCLOBENZAPRINE HCL [Concomitant]
     Indication: DRUG USE FOR UNKNOWN INDICATION
     Route: 048
  5. HYDROXYCHLOROQUINE SULFATE [Concomitant]
     Indication: ARTHRITIS
     Route: 048
  6. ATORVASTATIN CALCIUM [Concomitant]
     Indication: BLOOD CHOLESTEROL
  7. DULOXETINE HYDROCHLORIDE [Concomitant]
     Indication: DEPRESSION
     Dates: start: 20010101
  8. MELOXICAM [Concomitant]
     Indication: ANTIINFLAMMATORY THERAPY
     Dates: start: 20070101
  9. FOLIC ACID [Concomitant]
     Indication: DRUG USE FOR UNKNOWN INDICATION
  10. METOPROLOL SUCCINATE [Concomitant]
     Indication: CARDIAC DISORDER
     Dates: start: 20040101
  11. LISINOPRIL [Concomitant]
     Indication: CARDIAC DISORDER
     Dates: start: 20010101
  12. OMEPRAZOLE MAGNESIUM [Concomitant]
     Indication: GASTRIC DISORDER
  13. FENTANYL [Concomitant]
     Indication: PAIN
     Route: 062
     Dates: start: 20060101
  14. TYLOX [Concomitant]
     Indication: PAIN
     Dosage: 5/325MG; 3-4 TIMES A DAY

REACTIONS (2)
  - INJECTION SITE IRRITATION [None]
  - MEDICAL DEVICE COMPLICATION [None]
